FAERS Safety Report 17666721 (Version 13)
Quarter: 2022Q3

REPORT INFORMATION
  Report Type: Report from Study
  Country: US (occurrence: US)
  Receive Date: 20200414
  Receipt Date: 20220704
  Transmission Date: 20221026
  Serious: Yes (Other)
  Sender: FDA-Public Use
  Company Number: NVSC2020US098602

PATIENT
  Sex: Female

DRUGS (1)
  1. GLEEVEC [Suspect]
     Active Substance: IMATINIB MESYLATE
     Indication: Product used for unknown indication
     Dosage: UNK
     Route: 065

REACTIONS (13)
  - Leukaemia [Unknown]
  - Feeling abnormal [Unknown]
  - Abnormal dreams [Unknown]
  - Muscle strain [Unknown]
  - Illness [Unknown]
  - Product dose omission issue [Unknown]
  - Product substitution issue [Unknown]
  - Pain in extremity [Unknown]
  - Nausea [Unknown]
  - Hypersensitivity [Unknown]
  - Fluid retention [Unknown]
  - Dyspnoea [Unknown]
  - Malaise [Unknown]
